FAERS Safety Report 11026225 (Version 2)
Quarter: 2015Q2

REPORT INFORMATION
  Report Type: Spontaneous
  Country: US (occurrence: US)
  Receive Date: 20150414
  Receipt Date: 20150512
  Transmission Date: 20150821
  Serious: No
  Sender: FDA-Public Use
  Company Number: US-TEVA-551555USA

PATIENT
  Age: 73 Year
  Sex: Female
  Weight: 99.88 kg

DRUGS (5)
  1. AZILECT [Suspect]
     Active Substance: RASAGILINE MESYLATE
     Indication: PARKINSON^S DISEASE
     Route: 065
     Dates: start: 201403
  2. PRAMIPEXOLE [Concomitant]
     Active Substance: PRAMIPEXOLE
     Indication: PARKINSON^S DISEASE
     Dosage: 3 MILLIGRAM DAILY;
     Route: 065
  3. LASIX [Concomitant]
     Active Substance: FUROSEMIDE
     Indication: PERIPHERAL SWELLING
  4. EUFLEXXA [Interacting]
     Active Substance: HYALURONATE SODIUM
     Indication: CHONDROPATHY
     Route: 065
  5. EUFLEXXA [Interacting]
     Active Substance: HYALURONATE SODIUM
     Indication: MUSCULOSKELETAL STIFFNESS

REACTIONS (3)
  - Peripheral swelling [Not Recovered/Not Resolved]
  - Drug interaction [Recovered/Resolved]
  - Limb injury [Not Recovered/Not Resolved]

NARRATIVE: CASE EVENT DATE: 201503
